FAERS Safety Report 7496441-9 (Version None)
Quarter: 2011Q2

REPORT INFORMATION
  Report Type: 
  Country: None (occurrence: None)
  Receive Date: 20110523
  Receipt Date: 20110519
  Transmission Date: 20111010
  Serious: Yes (Other)
  Sender: FDA-Public Use
  Company Number: US-PFIZER INC-2011109160

PATIENT
  Sex: Female
  Weight: 118 kg

DRUGS (6)
  1. CUMADIN [Concomitant]
     Indication: ANTICOAGULANT THERAPY
     Dosage: UNK
  2. HUMULIN N [Concomitant]
     Indication: DIABETES MELLITUS
     Dosage: UNK
  3. BETOPTIC S [Concomitant]
     Indication: GLAUCOMA
     Dosage: UNK
  4. CALAN [Suspect]
     Indication: HYPERTENSION
     Dosage: 120 MG, DAILY
     Route: 048
  5. XALATAN [Concomitant]
     Indication: GLAUCOMA
     Dosage: UNK, DAILY
  6. CALAN [Suspect]
     Indication: ATRIAL FIBRILLATION
     Dosage: 120 MG, 2X/DAY
     Route: 048

REACTIONS (5)
  - DRUG INTOLERANCE [None]
  - DIZZINESS [None]
  - PALPITATIONS [None]
  - DYSPNOEA [None]
  - ANAPHYLACTIC REACTION [None]
